FAERS Safety Report 13692632 (Version 4)
Quarter: 2017Q4

REPORT INFORMATION
  Report Type: Spontaneous
  Country: US (occurrence: US)
  Receive Date: 20170627
  Receipt Date: 20171003
  Transmission Date: 20180320
  Serious: No
  Sender: FDA-Public Use
  Company Number: US-PFIZER INC-2017276086

PATIENT
  Age: 67 Year
  Sex: Female
  Weight: 82.86 kg

DRUGS (2)
  1. IBRANCE [Suspect]
     Active Substance: PALBOCICLIB
     Indication: BREAST CANCER METASTATIC
     Dosage: 125 MG, CYCLIC [DAYS 1-21 Q28 DAYS]
     Route: 048
     Dates: start: 20170616
  2. IBRANCE [Suspect]
     Active Substance: PALBOCICLIB
     Dosage: 125 MG, CYCLIC [DAYS 1-21 Q28 DAYS]
     Route: 048
     Dates: end: 201709

REACTIONS (6)
  - Pain [Unknown]
  - Arthritis [Unknown]
  - Tooth disorder [Unknown]
  - Neoplasm progression [Unknown]
  - Fatigue [Unknown]
  - Bone pain [Unknown]

NARRATIVE: CASE EVENT DATE: 2017
